FAERS Safety Report 7790964-0 (Version None)
Quarter: 2011Q4

REPORT INFORMATION
  Report Type: 
  Country: None (occurrence: None)
  Receive Date: 20111002
  Receipt Date: 20110927
  Transmission Date: 20120403
  Serious: Yes (Disabling)
  Sender: FDA-Public Use
  Company Number: PHEH2011US05360

PATIENT
  Sex: Male

DRUGS (1)
  1. AFINITOR [Suspect]
     Dosage: 10 MG, QD
     Route: 048

REACTIONS (2)
  - PAIN IN EXTREMITY [None]
  - RENAL DISORDER [None]
